FAERS Safety Report 8246348-4 (Version None)
Quarter: 2012Q1

REPORT INFORMATION
  Report Type: 
  Country: None (occurrence: None)
  Receive Date: 20120330
  Receipt Date: 20120322
  Transmission Date: 20120608
  Serious: Yes (Hospitalization)
  Sender: FDA-Public Use
  Company Number: US-BAYER-2011-083741

PATIENT
  Sex: Female
  Weight: 88 kg

DRUGS (12)
  1. PREVACID [Concomitant]
  2. RANITIDINE [Concomitant]
  3. ZYRTEC [Concomitant]
  4. HYDROCORTISONE [Concomitant]
  5. YASMIN [Suspect]
     Dosage: UNK
     Dates: start: 20011201, end: 20080701
  6. LIDOCAINE HCL VISCOUS [Concomitant]
  7. MAGNESIUM HYDROXIDE TAB [Concomitant]
  8. ALLEGRA [Concomitant]
  9. IBUPROFEN [Concomitant]
  10. LEXAPRO [Concomitant]
  11. ZITHROMAX [Concomitant]
  12. EFFEXOR [Concomitant]

REACTIONS (6)
  - GALLBLADDER OBSTRUCTION [None]
  - EMOTIONAL DISTRESS [None]
  - PAIN [None]
  - ANHEDONIA [None]
  - BILIARY COLIC [None]
  - ANXIETY [None]
